FAERS Safety Report 6646770-3 (Version None)
Quarter: 2010Q1

REPORT INFORMATION
  Report Type: 
  Country: None (occurrence: None)
  Receive Date: 20100323
  Receipt Date: 20100309
  Transmission Date: 20100710
  Serious: No
  Sender: FDA-Public Use
  Company Number: US-JNJFOC-20100302979

PATIENT
  Sex: Female
  Weight: 61.24 kg

DRUGS (6)
  1. FENTANYL-100 [Suspect]
     Indication: BONE PAIN
     Route: 062
  2. FENTANYL-100 [Suspect]
     Route: 062
  3. TOPAMAX [Concomitant]
     Indication: MIGRAINE
     Route: 048
  4. XANAX [Concomitant]
     Indication: NERVOUSNESS
     Route: 048
  5. BETASERON [Concomitant]
     Indication: MULTIPLE SCLEROSIS
     Route: 058
  6. PHENERGAN HCL [Concomitant]
     Indication: VOMITING
     Route: 030

REACTIONS (2)
  - DRUG DOSE OMISSION [None]
  - DRUG INEFFECTIVE [None]
